FAERS Safety Report 5289697-4 (Version None)
Quarter: 2007Q1

REPORT INFORMATION
  Report Type: 
  Country: None (occurrence: None)
  Receive Date: 20070330
  Receipt Date: 20070320
  Transmission Date: 20070707
  Serious: Yes (Hospitalization)
  Sender: FDA-Public Use
  Company Number: 2005-131284-NL

PATIENT
  Age: 21 Year
  Sex: Female

DRUGS (1)
  1. ETONOGESTREL (BATCH # : 694027 / 701159) [Suspect]
     Dosage: DF SUBCUTANEOUS
     Route: 058
     Dates: start: 20050427, end: 20070131

REACTIONS (9)
  - ABDOMINAL PAIN [None]
  - CANDIDIASIS [None]
  - DEVICE BREAKAGE [None]
  - FLATULENCE [None]
  - HEADACHE [None]
  - IMPLANT SITE PARAESTHESIA [None]
  - IMPLANT SITE REACTION [None]
  - INJECTED LIMB MOBILITY DECREASED [None]
  - MOVEMENT DISORDER [None]
